FAERS Safety Report 9289203 (Version 1)
Quarter: 2013Q2

REPORT INFORMATION
  Report Type: Spontaneous
  Country: IN (occurrence: IN)
  Receive Date: 20130514
  Receipt Date: 20130514
  Transmission Date: 20140414
  Serious: Yes (Other)
  Sender: FDA-Public Use
  Company Number: IN-SPECTRUM PHARMACEUTICALS, INC.-13-F-IN-00162

PATIENT
  Age: 55 Year
  Sex: Male

DRUGS (2)
  1. FLUOROURACIL [Suspect]
     Indication: COLON CANCER
     Dosage: 6600 MG/M2, UNK
     Route: 042
  2. OXALIPLATIN [Suspect]
     Indication: COLON CANCER
     Dosage: 245 MG/M2, UNK
     Route: 042

REACTIONS (2)
  - Leukoencephalopathy [Recovering/Resolving]
  - Encephalopathy [Recovering/Resolving]
